FAERS Safety Report 5558984-4 (Version None)
Quarter: 2007Q4

REPORT INFORMATION
  Report Type: 
  Country: None (occurrence: None)
  Receive Date: 20071214
  Receipt Date: 20070909
  Transmission Date: 20080405
  Serious: No
  Sender: FDA-Public Use
  Company Number: US-ABBOTT-07P-163-0417014-00

PATIENT
  Sex: Male
  Weight: 69.462 kg

DRUGS (1)
  1. HUMIRA [Suspect]
     Indication: CROHN'S DISEASE
     Route: 058
     Dates: start: 20070801, end: 20070912

REACTIONS (4)
  - BACK PAIN [None]
  - DEMYELINATION [None]
  - HEADACHE [None]
  - SINUSITIS [None]
